FAERS Safety Report 23229770 (Version 1)
Quarter: 2023Q4

REPORT INFORMATION
  Report Type: Spontaneous
  Country: US (occurrence: None)
  Receive Date: 20231127
  Receipt Date: 20231127
  Transmission Date: 20240109
  Serious: No
  Sender: FDA-Public Use
  Company Number: US-ROCHE-3349561

PATIENT
  Age: 82 Year
  Sex: Male

DRUGS (2)
  1. LUCENTIS [Suspect]
     Active Substance: RANIBIZUMAB
     Indication: Neovascular age-related macular degeneration
     Dosage: UNKNOWN
     Route: 065
     Dates: start: 20181107, end: 20190410
  2. EYLEA [Concomitant]
     Active Substance: AFLIBERCEPT

REACTIONS (2)
  - Rhinorrhoea [Unknown]
  - Off label use [Unknown]
